FAERS Safety Report 6698836-X (Version None)
Quarter: 2010Q2

REPORT INFORMATION
  Report Type: 
  Country: None (occurrence: None)
  Receive Date: 20100427
  Receipt Date: 20100421
  Transmission Date: 20101027
  Serious: Yes (Life-Threatening, Hospitalization)
  Sender: FDA-Public Use
  Company Number: PHHY2010US25526

PATIENT
  Sex: Male

DRUGS (1)
  1. AFINITOR [Suspect]
     Indication: RENAL CANCER
     Dosage: 10 MG, QD
     Route: 048
     Dates: start: 20100301

REACTIONS (9)
  - ABDOMINAL DISCOMFORT [None]
  - DRY SKIN [None]
  - EATING DISORDER [None]
  - FEELING ABNORMAL [None]
  - HYPERCALCAEMIA [None]
  - MALIGNANT NEOPLASM PROGRESSION [None]
  - METASTASES TO SKIN [None]
  - SKIN DISORDER [None]
  - STOMATITIS [None]
